FAERS Safety Report 17425059 (Version 2)
Quarter: 2020Q1

REPORT INFORMATION
  Report Type: Spontaneous
  Country: JP (occurrence: JP)
  Receive Date: 20200217
  Receipt Date: 20200218
  Transmission Date: 20200409
  Serious: Yes (Death, Hospitalization, Other)
  Sender: FDA-Public Use
  Company Number: JP-ROCHE-2547877

PATIENT
  Age: 76 Year
  Sex: Male
  Weight: 53 kg

DRUGS (5)
  1. ACTEMRA [Suspect]
     Active Substance: TOCILIZUMAB
     Indication: RHEUMATOID ARTHRITIS
     Route: 041
  2. METHOTREXATE. [Suspect]
     Active Substance: METHOTREXATE
     Indication: RHEUMATOID ARTHRITIS
     Route: 048
  3. CELECOXIB. [Concomitant]
     Active Substance: CELECOXIB
     Route: 048
  4. FOLIC ACID. [Concomitant]
     Active Substance: FOLIC ACID
     Route: 048
  5. FUROSEMIDE. [Concomitant]
     Active Substance: FUROSEMIDE
     Route: 048

REACTIONS (8)
  - Infectious pleural effusion [Unknown]
  - Urinary tract infection [Unknown]
  - Staphylococcal infection [Unknown]
  - Infective spondylitis [Unknown]
  - Hydronephrosis [Unknown]
  - Arthritis bacterial [Unknown]
  - Septic shock [Fatal]
  - Pneumonia [Unknown]
